FAERS Safety Report 9370717 (Version 1)
Quarter: 2013Q2

REPORT INFORMATION
  Report Type: Spontaneous
  Country: FR (occurrence: FR)
  Receive Date: 20130626
  Receipt Date: 20130626
  Transmission Date: 20140414
  Serious: Yes (Hospitalization)
  Sender: FDA-Public Use
  Company Number: FR-TEVA-414071ISR

PATIENT
  Age: 92 Year
  Sex: Female

DRUGS (1)
  1. FUROSEMIDE [Suspect]
     Indication: CARDIAC FAILURE
     Dosage: 40 KUI, DAY
     Route: 048
     Dates: start: 20130530, end: 20130609

REACTIONS (3)
  - Somnolence [Recovered/Resolved]
  - Dyspnoea [Recovered/Resolved]
  - Oedema peripheral [Recovered/Resolved]
